FAERS Safety Report 10074756 (Version 2)
Quarter: 2014Q2

REPORT INFORMATION
  Report Type: Spontaneous
  Country: US (occurrence: US)
  Receive Date: 20140414
  Receipt Date: 20140610
  Transmission Date: 20141212
  Serious: Yes (Death)
  Sender: FDA-Public Use
  Company Number: US-BIOGENIDEC-2014BI032546

PATIENT
  Age: 65 Year
  Sex: Female

DRUGS (14)
  1. AVONEX [Suspect]
     Indication: MULTIPLE SCLEROSIS
     Route: 030
     Dates: start: 20090716
  2. AVONEX [Suspect]
     Indication: MULTIPLE SCLEROSIS
     Route: 030
     Dates: start: 20130128, end: 20140225
  3. AMITRIPTYLINE HCL [Concomitant]
     Route: 048
     Dates: start: 20130503
  4. BACLOFEN [Concomitant]
  5. CENTRUM SILVER ULTRA WOMENS [Concomitant]
  6. ESTRADIOL [Concomitant]
     Route: 048
     Dates: start: 20130503
  7. IBUPROFEN [Concomitant]
  8. GLUCOPHAGE XR [Concomitant]
     Route: 048
     Dates: start: 20130503
  9. SIMVASTATIN [Concomitant]
     Route: 048
     Dates: start: 20130503
  10. BETHANECHOL CHLORIDE [Concomitant]
     Route: 048
     Dates: start: 20130628
  11. DIFLUCAN [Concomitant]
     Route: 048
     Dates: start: 20130628
  12. SEPTRA DS [Concomitant]
     Route: 048
     Dates: start: 20130628
  13. CELEBREX [Concomitant]
     Route: 048
     Dates: start: 20130529
  14. CLOBETASOL PROPIONATE [Concomitant]
     Route: 061

REACTIONS (4)
  - Small intestinal obstruction [Fatal]
  - Abdominal operation [Fatal]
  - Organ failure [Fatal]
  - Sepsis [Fatal]
